FAERS Safety Report 9323403 (Version 2)
Quarter: 2013Q2

REPORT INFORMATION
  Report Type: Spontaneous
  Country: FR (occurrence: FR)
  Receive Date: 20130603
  Receipt Date: 20130605
  Transmission Date: 20140414
  Serious: Yes (Hospitalization, Other)
  Sender: FDA-Public Use
  Company Number: FR-VERTEX PHARMACEUTICALS INC-2013-006653

PATIENT
  Age: 58 Year
  Sex: Male

DRUGS (8)
  1. INCIVO [Suspect]
     Indication: HEPATITIS C
     Dosage: 750 MG, TID
     Route: 048
  2. BOSENTAN [Interacting]
     Indication: PULMONARY ARTERIAL HYPERTENSION
     Dosage: 125 MG, BID
     Route: 065
  3. PEGINTERFERON ALFA 2A [Suspect]
     Indication: HEPATITIS C
     Dosage: UNK
     Route: 065
  4. RIBAVIRIN [Suspect]
     Indication: HEPATITIS C
     Dosage: UNK
     Route: 065
  5. RALTEGRAVIR [Concomitant]
     Indication: HEPATITIS B
     Dosage: UNK
     Route: 065
  6. RALTEGRAVIR [Concomitant]
     Indication: HIV INFECTION
  7. EMTRICITABINE W/TENOFOVIR DISOPROXIL FUMARATE [Concomitant]
     Indication: HEPATITIS B
     Route: 065
  8. EMTRICITABINE W/TENOFOVIR DISOPROXIL FUMARATE [Concomitant]
     Indication: HIV INFECTION

REACTIONS (3)
  - Neuropsychiatric syndrome [Recovered/Resolved]
  - Drug interaction [Unknown]
  - Off label use [Unknown]
